FAERS Safety Report 24275620 (Version 1)
Quarter: 2024Q3

REPORT INFORMATION
  Report Type: Spontaneous
  Country: JP (occurrence: JP)
  Receive Date: 20240903
  Receipt Date: 20240903
  Transmission Date: 20241017
  Serious: Yes (Other)
  Sender: AMGEN
  Company Number: JP-Vifor (International) Inc.-VIT-2024-07736

PATIENT
  Age: 75 Year
  Sex: Male

DRUGS (2)
  1. TAVNEOS [Suspect]
     Active Substance: AVACOPAN
     Indication: Microscopic polyangiitis
     Dosage: UNK
     Route: 048
  2. TAVNEOS [Suspect]
     Active Substance: AVACOPAN
     Dosage: UNK
     Route: 048

REACTIONS (1)
  - Surgery [Unknown]
